FAERS Safety Report 8578155-7 (Version None)
Quarter: 2012Q3

REPORT INFORMATION
  Report Type: 
  Country: None (occurrence: None)
  Receive Date: 20120808
  Receipt Date: 20120403
  Transmission Date: 20120928
  Serious: Yes (Death, Hospitalization, Other)
  Sender: FDA-Public Use
  Company Number: DE-CELGENEUS-062-50794-12052690

PATIENT
  Age: 70 Year
  Sex: Male
  Weight: 81 kg

DRUGS (2)
  1. VIDAZA [Suspect]
     Route: 058
     Dates: end: 20111106
  2. VIDAZA [Suspect]
     Route: 058
     Dates: start: 20110124

REACTIONS (6)
  - EPISTAXIS [None]
  - LEUKOPENIA [None]
  - DEATH [None]
  - THROMBOCYTOPENIA [None]
  - BLOOD URINE PRESENT [None]
  - ANAEMIA [None]
